FAERS Safety Report 8592947 (Version 3)
Quarter: 2012Q4

REPORT INFORMATION
  Report Type: 
  Country: US (occurrence: US)
  Receive Date: 20120604
  Receipt Date: 20121005
  Transmission Date: 20130627
  Serious: Yes (Hospitalization)
  Sender: FDA-Public Use
  Company Number: US-BIOGENIDEC-2012BI018953

PATIENT
  Age: 32 Year
  Sex: Female

DRUGS (10)
  1. TYSABRI [Suspect]
     Indication: MULTIPLE SCLEROSIS
     Route: 042
     Dates: start: 20110107
  2. KEPPRA [Concomitant]
  3. LAMICTAL [Concomitant]
  4. TOPAMAX [Concomitant]
  5. LYRICA [Concomitant]
  6. KLONOPIN [Concomitant]
  7. AMITRIPTYLINE [Concomitant]
  8. MAXALT [Concomitant]
  9. AMBIEN [Concomitant]
  10. BACLOFEN [Concomitant]

REACTIONS (2)
  - Partial seizures with secondary generalisation [Recovered/Resolved]
  - Asthma [Unknown]
